FAERS Safety Report 4755468-8 (Version None)
Quarter: 2005Q3

REPORT INFORMATION
  Report Type: 
  Country: None (occurrence: None)
  Receive Date: 20050830
  Receipt Date: 20050823
  Transmission Date: 20060218
  Serious: Yes (Hospitalization)
  Sender: FDA-Public Use
  Company Number: AU-BOEHRINGER INGELHEIM PHARMACEUTICALS, INC.-2005-BP-14917AU

PATIENT
  Age: 20 Year
  Sex: Female
  Weight: 58 kg

DRUGS (6)
  1. ATROVENT UNIT DOSE VIAL [Suspect]
     Indication: ASTHMA
     Route: 055
     Dates: start: 20040327, end: 20040331
  2. ERYTHROMYCIN INJECTION [Suspect]
     Route: 042
     Dates: start: 20040327, end: 20040327
  3. CEFTRIAXONE INJECTION [Suspect]
     Route: 042
     Dates: start: 20040327, end: 20040331
  4. PARACETAMOL [Suspect]
     Route: 048
     Dates: start: 20040327, end: 20040330
  5. VENTOLIN [Suspect]
     Indication: ASTHMA
     Route: 055
     Dates: start: 20040327, end: 20040331
  6. SERETIDE ACCUHALER [Concomitant]
     Indication: ASTHMA
     Route: 055

REACTIONS (2)
  - NAUSEA [None]
  - VOMITING [None]
